FAERS Safety Report 4834870-X (Version None)
Quarter: 2005Q4

REPORT INFORMATION
  Report Type: 
  Country: None (occurrence: None)
  Receive Date: 20051115
  Receipt Date: 20051104
  Transmission Date: 20060501
  Serious: Yes (Other)
  Sender: FDA-Public Use
  Company Number: KII-2005-0019457

PATIENT
  Age: 43 Year
  Sex: Female

DRUGS (4)
  1. OXYCODONE HCL [Suspect]
     Dosage: ORAL
     Route: 048
  2. AMITRIPTYLINE HCL [Suspect]
     Dosage: ORAL
     Route: 048
  3. BENZODIAZEPINE DERIVATIVES [Suspect]
     Dosage: ORAL
     Route: 048
  4. ANTIEPILEPTICS [Suspect]
     Dosage: ORAL
     Route: 048

REACTIONS (8)
  - AGITATION [None]
  - ATELECTASIS [None]
  - CONFUSIONAL STATE [None]
  - DRUG TOXICITY [None]
  - LUNG DISORDER [None]
  - OXYGEN SATURATION DECREASED [None]
  - SCAR [None]
  - SINUS TACHYCARDIA [None]
